FAERS Safety Report 21998658 (Version 3)
Quarter: 2023Q1

REPORT INFORMATION
  Report Type: Spontaneous
  Country: ES (occurrence: ES)
  Receive Date: 20230216
  Receipt Date: 20230307
  Transmission Date: 20230418
  Serious: Yes (Other)
  Sender: FDA-Public Use
  Company Number: ES-ASTPRD-AER-2023-004162

PATIENT
  Age: 72 Year
  Sex: Male

DRUGS (8)
  1. ENFORTUMAB VEDOTIN [Suspect]
     Active Substance: ENFORTUMAB VEDOTIN
     Indication: Ill-defined disorder
     Dosage: 87 MG, CYCLIC (DAY 1,8,15 IN 28-DAY)
     Route: 042
     Dates: start: 20221122
  2. ENFORTUMAB VEDOTIN [Suspect]
     Active Substance: ENFORTUMAB VEDOTIN
     Dosage: 87 MG, CYCLIC (DAY 1,8,15 IN 28-DAY)
     Route: 042
  3. DULOXETINE [Concomitant]
     Active Substance: DULOXETINE
     Indication: Product used for unknown indication
     Route: 065
     Dates: start: 20220728
  4. EBASTINE [Concomitant]
     Active Substance: EBASTINE
     Indication: Product used for unknown indication
     Dosage: UNK UNK, AS NEEDED (1-2 TABS)
     Route: 065
     Dates: start: 20221129
  5. ACETAMINOPHEN [Concomitant]
     Active Substance: ACETAMINOPHEN
     Indication: Product used for unknown indication
     Route: 065
     Dates: start: 20220117
  6. METAMIZOLE [Concomitant]
     Active Substance: METAMIZOLE
     Indication: Product used for unknown indication
     Route: 065
     Dates: start: 20220503
  7. Kaptic [Concomitant]
     Indication: Pain
     Route: 065
     Dates: start: 20220601
  8. AMLODIPINE [Concomitant]
     Active Substance: AMLODIPINE BESYLATE
     Indication: Product used for unknown indication
     Dosage: 1 DF, ONCE DAILY (1 COMP)
     Route: 065
     Dates: start: 20220914

REACTIONS (2)
  - Skin toxicity [Not Recovered/Not Resolved]
  - Respiratory tract infection [Unknown]

NARRATIVE: CASE EVENT DATE: 20221205
